FAERS Safety Report 14477607 (Version 1)
Quarter: 2018Q1

REPORT INFORMATION
  Report Type: Report from Study
  Country: US (occurrence: US)
  Receive Date: 20180201
  Receipt Date: 20180201
  Transmission Date: 20180509
  Serious: No
  Sender: FDA-Public Use
  Company Number: US-EXELIXIS-CABO-17009425

PATIENT
  Sex: Female

DRUGS (16)
  1. SODIUM BICARBONATE. [Concomitant]
     Active Substance: SODIUM BICARBONATE
  2. LOSARTAN POTASSIUM. [Concomitant]
     Active Substance: LOSARTAN POTASSIUM
  3. CABOMETYX [Suspect]
     Active Substance: CABOZANTINIB S-MALATE
     Indication: ACUTE KIDNEY INJURY
     Dosage: 20 MG, QD
     Route: 048
     Dates: start: 20170825
  4. ONDANSETRON [Concomitant]
     Active Substance: ONDANSETRON
  5. CREON [Concomitant]
     Active Substance: PANCRELIPASE AMYLASE\PANCRELIPASE LIPASE\PANCRELIPASE PROTEASE
  6. GABAPENTIN. [Concomitant]
     Active Substance: GABAPENTIN
  7. GLIPIZIDE. [Concomitant]
     Active Substance: GLIPIZIDE
  8. VITAMIN B12 [Concomitant]
     Active Substance: CYANOCOBALAMIN
  9. CABOMETYX [Suspect]
     Active Substance: CABOZANTINIB S-MALATE
     Indication: METASTASES TO ADRENALS
     Dosage: 40 MG, QD
     Route: 048
     Dates: start: 20170725, end: 2017
  10. POLYETHYLENE GLYCOL [Concomitant]
     Active Substance: POLYETHYLENE GLYCOLS
  11. ULTRACET [Concomitant]
     Active Substance: ACETAMINOPHEN\TRAMADOL HYDROCHLORIDE
  12. CABOMETYX [Suspect]
     Active Substance: CABOZANTINIB S-MALATE
     Indication: RENAL CANCER
     Dosage: 40 MG, QD
     Route: 048
     Dates: start: 20170517, end: 20170707
  13. CARAFATE [Concomitant]
     Active Substance: SUCRALFATE
  14. VITAMIN D [Concomitant]
     Active Substance: CHOLECALCIFEROL
  15. LEVOTHYROXINE. [Concomitant]
     Active Substance: LEVOTHYROXINE
  16. LOVASTATIN. [Concomitant]
     Active Substance: LOVASTATIN

REACTIONS (11)
  - Pruritus [Unknown]
  - Rash pustular [Unknown]
  - Hyperkeratosis [Unknown]
  - Oropharyngeal pain [Unknown]
  - Blood glucose decreased [Not Recovered/Not Resolved]
  - Fatigue [Unknown]
  - Staphylococcal infection [Unknown]
  - Glossodynia [Unknown]
  - Arthritis [Not Recovered/Not Resolved]
  - Skin ulcer [Unknown]
  - Oral pain [Unknown]
